FAERS Safety Report 8493478 (Version 2)
Quarter: 2012Q4

REPORT INFORMATION
  Report Type: 
  Country: US (occurrence: US)
  Receive Date: 20120404
  Receipt Date: 20121029
  Transmission Date: 20130627
  Serious: Yes (Hospitalization, Disabling, Other)
  Sender: FDA-Public Use
  Company Number: US-PFIZER INC-2012082826

PATIENT
  Age: 60 Year
  Sex: Male

DRUGS (4)
  1. CHANTIX [Suspect]
     Indication: SMOKING CESSATION THERAPY
     Dosage: 0.5mg starter pack and 1mg continuing packs
     Dates: start: 200703, end: 200904
  2. VYTORIN [Concomitant]
     Indication: BLOOD PRESSURE
     Dosage: UNK
  3. PLAVIX [Concomitant]
     Indication: BLOOD PRESSURE HIGH
     Dosage: UNK
  4. ADDERALL [Concomitant]
     Indication: ADHD
     Dosage: as needed
     Dates: start: 2003

REACTIONS (3)
  - Grand mal convulsion [Not Recovered/Not Resolved]
  - Tongue biting [Unknown]
  - Face injury [Unknown]
